FAERS Safety Report 18324751 (Version 4)
Quarter: 2021Q1

REPORT INFORMATION
  Report Type: Spontaneous
  Country: US (occurrence: US)
  Receive Date: 20200929
  Receipt Date: 20210107
  Transmission Date: 20210419
  Serious: Yes (Other)
  Sender: FDA-Public Use
  Company Number: US-SA-2020SA265949

PATIENT

DRUGS (13)
  1. AUVI?Q [Concomitant]
     Active Substance: EPINEPHRINE
     Indication: HYPERSENSITIVITY
     Dosage: UNK
     Dates: start: 20181212
  2. ZYRTEC [Concomitant]
     Active Substance: CETIRIZINE HYDROCHLORIDE
     Dosage: 1?2 TABLETS BU MOUTH TWICE DAILY AS TOLERATED/DIRECTED
     Dates: start: 20180613
  3. AMLODIPINE BESILATE [Concomitant]
     Active Substance: AMLODIPINE BESYLATE
  4. DUPIXENT [Suspect]
     Active Substance: DUPILUMAB
     Indication: DERMATITIS ATOPIC
     Dosage: 300 MG, QOW
     Route: 058
     Dates: start: 20200320
  5. DUPIXENT [Suspect]
     Active Substance: DUPILUMAB
     Dosage: 1 DF, QOW
     Route: 058
     Dates: start: 20200924
  6. EYLEA [Concomitant]
     Active Substance: AFLIBERCEPT
     Indication: MACULAR DEGENERATION
     Dosage: UNK
     Route: 031
     Dates: start: 20200529
  7. PHENTERMINE HCL [Concomitant]
     Active Substance: PHENTERMINE HYDROCHLORIDE
     Dosage: 1 DF, BID
     Route: 048
     Dates: start: 20180613
  8. EZETIMIBE. [Concomitant]
     Active Substance: EZETIMIBE
  9. METOPROLOL TARTRATE. [Concomitant]
     Active Substance: METOPROLOL TARTRATE
  10. TRIAMCINOLONE ACETONIDE. [Concomitant]
     Active Substance: TRIAMCINOLONE ACETONIDE
     Dosage: ONCE OR TWICE DAILY AS DIRECTED
     Dates: start: 20200529
  11. HYDROXYZINE HCL [Concomitant]
     Active Substance: HYDROXYZINE HYDROCHLORIDE
     Dosage: 1 TO 2 TABLETS EVERY 6 HOURS AS NEEDED/TOLERATED
     Route: 048
     Dates: start: 20200609
  12. FLOMAX [Concomitant]
     Active Substance: TAMSULOSIN HYDROCHLORIDE
  13. HYDROCORTISONE. [Concomitant]
     Active Substance: HYDROCORTISONE

REACTIONS (10)
  - Aortic stenosis [Unknown]
  - Ventricular extrasystoles [Unknown]
  - Chronic kidney disease [Not Recovered/Not Resolved]
  - Sarcoidosis [Unknown]
  - Ejection fraction decreased [Unknown]
  - Therapeutic response unexpected [Unknown]
  - Blood creatinine increased [Not Recovered/Not Resolved]
  - Cardiac failure congestive [Recovering/Resolving]
  - Weight increased [Unknown]
  - Pruritus [Unknown]

NARRATIVE: CASE EVENT DATE: 2020
